FAERS Safety Report 11529856 (Version 1)
Quarter: 2015Q3

REPORT INFORMATION
  Report Type: Spontaneous
  Country: HR (occurrence: HR)
  Receive Date: 20150921
  Receipt Date: 20150921
  Transmission Date: 20151125
  Serious: Yes (Other)
  Sender: FDA-Public Use
  Company Number: HR-TEVA-593278ISR

PATIENT
  Age: 56 Year
  Sex: Male

DRUGS (2)
  1. HELEX [Concomitant]
     Active Substance: ALPRAZOLAM
     Indication: POST-TRAUMATIC STRESS DISORDER
     Route: 048
     Dates: start: 20150325, end: 20150721
  2. OLANDIX 5 MG RASPADLJIVE TABLETE ZA USTA [Suspect]
     Active Substance: OLANZAPINE
     Indication: POST-TRAUMATIC STRESS DISORDER
     Dosage: 10 MILLIGRAM DAILY; TONGUE SOLUBLE
     Route: 048
     Dates: start: 20150325, end: 20150709

REACTIONS (5)
  - Erectile dysfunction [Recovering/Resolving]
  - Apathy [Recovering/Resolving]
  - Suicidal ideation [Recovering/Resolving]
  - Loss of libido [Recovering/Resolving]
  - Weight decreased [Recovering/Resolving]

NARRATIVE: CASE EVENT DATE: 20150611
